FAERS Safety Report 7006790 (Version 5)
Quarter: 2013Q3

REPORT INFORMATION
  Report Type: Report from Study
  Country: JP (occurrence: JP)
  Receive Date: 20090529
  Receipt Date: 20130710
  Transmission Date: 20140515
  Serious: Yes (Death, Other)
  Sender: FDA-Public Use
  Company Number: JP-BRISTOL-MYERS SQUIBB COMPANY-14635452

PATIENT
  Age: 43 Year
  Sex: Male
  Weight: 48.6 kg

DRUGS (37)
  1. SPRYCEL [Suspect]
     Indication: ACUTE LYMPHOCYTIC LEUKAEMIA
     Dosage: INTERRUPTED 13MAY2009
     Route: 048
     Dates: start: 20090512, end: 20090515
  2. ENDOXAN [Suspect]
     Route: 041
     Dates: start: 20090512, end: 20090514
  3. LASIX [Suspect]
     Dosage: 1DF-20-40 MG
     Route: 042
     Dates: start: 20090515, end: 20090517
  4. ONCOVIN [Suspect]
     Dosage: GIVEN ON 15 AND 22 MAY 09
     Route: 042
     Dates: start: 20090515, end: 20090522
  5. ADRIACIN [Suspect]
     Route: 042
     Dates: start: 20090515, end: 20090515
  6. DEXAMETHASONE [Concomitant]
     Dosage: 12MAY09 - 15MAY09?22MAY09 - 25MAY09
     Route: 065
     Dates: start: 20090512
  7. OMEPRAL [Concomitant]
     Route: 048
     Dates: start: 20090512
  8. ITRIZOLE [Concomitant]
     Dosage: 12MAY09 - 21MAY09?23MAY09 TO ONGOING
     Route: 048
     Dates: start: 20090512
  9. DECADRON [Concomitant]
     Route: 048
  10. ALOSITOL [Concomitant]
     Route: 048
     Dates: start: 20090512, end: 20090521
  11. GENINAX [Concomitant]
     Dosage: 12MAY09 - 28MAY09?09JUN09 - 11JUN09
     Route: 048
     Dates: start: 20090512
  12. SULFAMETHOXAZOLE + TRIMETHOPRIM [Concomitant]
     Dates: start: 20090512, end: 20090512
  13. POTASSIUM CHLORIDE [Concomitant]
     Dosage: TABS.20ML/DAY:19MAY09-20MAY09
     Route: 048
     Dates: start: 20090516, end: 20090517
  14. MAGNESIUM OXIDE [Concomitant]
     Indication: PROPHYLAXIS
     Route: 048
     Dates: start: 20090526
  15. METOCLOPRAMIDE HCL [Concomitant]
     Indication: PROPHYLAXIS
     Dosage: 13MAY09 - 13MAY09-2 ML/DAY?26MAY09-
     Route: 048
     Dates: start: 20090526
  16. OXETHAZAINE [Concomitant]
     Dosage: 13MAY09 - 13MAY09?26MAY09 - 26MAY09
     Route: 048
     Dates: start: 20090513, end: 20090526
  17. KOLANTYL [Concomitant]
     Indication: PROPHYLAXIS
     Dosage: GRANULES?1GRAM/DAY
     Route: 048
     Dates: start: 20090513, end: 20090513
  18. TANNALBIN [Concomitant]
     Indication: PROPHYLAXIS
     Dosage: GRANULES?1GRAM/DAY
     Route: 048
     Dates: start: 20090514, end: 20090514
  19. ACETAMINOPHEN [Concomitant]
     Dosage: GIVEN ON 20MAY09,29MAY,31MAY,2JUN09,5JUN09-11JUN09
     Dates: start: 20090520, end: 20090611
  20. SENNOSIDES A AND B [Concomitant]
     Route: 048
     Dates: start: 20090526, end: 20090526
  21. LIDOCAINE + TRIBENOSIDE [Concomitant]
     Route: 062
     Dates: start: 20090513, end: 20090516
  22. SODIUM BICARBONATE [Concomitant]
     Dosage: INJ
     Route: 042
     Dates: start: 20090512, end: 20090515
  23. GRANISETRON HCL [Concomitant]
     Dates: start: 20090512, end: 20090515
  24. FILGRASTIM [Concomitant]
     Dosage: INJ
     Route: 042
     Dates: start: 20090526, end: 20090531
  25. DANAPAROID SODIUM [Concomitant]
     Dates: start: 20090515, end: 20090520
  26. CYANOCOBALAMIN + THIAMINE [Concomitant]
     Dosage: 18MAY09 - 20MAY09?30MAY09 - 30MAY09
     Dates: start: 20090518, end: 20090530
  27. PYRIDOXINE HCL [Concomitant]
     Dosage: 18MAY09 - 20MAY09?30MAY09 - 30MAY09
     Dates: start: 20090518
  28. DEXCHLORPHENIRAMINE MALEATE [Concomitant]
     Dates: start: 20090516, end: 20090524
  29. SCOPOLAMINE BUTYLBROMIDE [Concomitant]
     Dosage: 13MAY09 - 13MAY09?27MAY09 - 27MAY09?INJ
     Route: 042
     Dates: start: 20090513, end: 20090527
  30. PENTAZOCINE [Concomitant]
     Dosage: 13MAY09 - 13MAY09?25MAY09 - 25MAY09.INJ
     Route: 042
     Dates: start: 20090513, end: 20090525
  31. PROCHLORPERAZINE MESYLATE [Concomitant]
     Route: 042
     Dates: start: 20090515, end: 20090515
  32. VALACYCLOVIR HCL [Concomitant]
     Route: 048
     Dates: start: 20090602, end: 20090611
  33. MORPHINE HCL [Concomitant]
     Route: 048
     Dates: start: 20090527, end: 20090527
  34. SODIUM GUALENATE [Concomitant]
     Route: 048
     Dates: start: 20090528, end: 20090531
  35. LIDOCAINE [Concomitant]
     Dosage: SOLN
     Dates: start: 20090528, end: 20090531
  36. MEROPENEM [Concomitant]
     Dosage: INJ
     Route: 042
     Dates: start: 20090528, end: 20090608
  37. HYDROXYZINE HCL [Concomitant]
     Dosage: INJ
     Route: 042
     Dates: start: 20090527, end: 20090527

REACTIONS (14)
  - Death [Fatal]
  - Cardiac failure [Recovered/Resolved]
  - Atrial fibrillation [Recovered/Resolved]
  - Pulmonary oedema [Recovered/Resolved]
  - White blood cell count decreased [Recovered/Resolved]
  - Neutrophil count decreased [Recovered/Resolved]
  - Platelet count decreased [Recovered/Resolved]
  - Anaemia [Not Recovered/Not Resolved]
  - Herpes zoster [Recovered/Resolved]
  - Cystitis haemorrhagic [Recovered/Resolved]
  - Tumour lysis syndrome [Recovered/Resolved]
  - Hypokalaemia [Recovered/Resolved]
  - Gastrointestinal mucosal disorder [Recovered/Resolved]
  - Constipation [Recovered/Resolved]
